FAERS Safety Report 11726641 (Version 5)
Quarter: 2015Q4

REPORT INFORMATION
  Report Type: Report from Study
  Country: DE (occurrence: DE)
  Receive Date: 20151112
  Receipt Date: 20151222
  Transmission Date: 20160304
  Serious: Yes (Other)
  Sender: FDA-Public Use
  Company Number: DE-ROCHE-1659477

PATIENT
  Age: 81 Year
  Sex: Male
  Weight: 54 kg

DRUGS (6)
  1. PACLITAXEL. [Suspect]
     Active Substance: PACLITAXEL
     Indication: NON-SMALL CELL LUNG CANCER
     Dosage: FIRST CYCLE : 264- 254 MG THE 2ND CYCLE: 07/SEP/2015 DOSE 264 MG,  THIRD CYCLE: 02/OCT/2015
     Route: 042
     Dates: start: 20150815
  2. FORMOTOP [Concomitant]
     Active Substance: FORMOTEROL FUMARATE
     Indication: CHRONIC OBSTRUCTIVE PULMONARY DISEASE
     Route: 065
  3. BEVACIZUMAB [Suspect]
     Active Substance: BEVACIZUMAB
     Indication: NON-SMALL CELL LUNG CANCER
     Dosage: THE 2ND CYCLE: 07/SEP/2015,  THIRD CYCLE: 02/OCT/2015
     Route: 042
     Dates: start: 20150815
  4. CARBOPLATIN. [Suspect]
     Active Substance: CARBOPLATIN
     Indication: NON-SMALL CELL LUNG CANCER
     Dosage: FIRST CYCLE: 263-370 MG, 2ND CYCLE: 07/SEP/2015 DOSE 370 MG,  THIRD CYCLE: 02/OCT/2015
     Route: 042
     Dates: start: 20150815
  5. TAMSULOSIN [Concomitant]
     Active Substance: TAMSULOSIN
     Indication: BENIGN PROSTATIC HYPERPLASIA
     Route: 048
  6. PANTOZOL [Concomitant]
     Active Substance: PANTOPRAZOLE SODIUM
     Indication: PROPHYLAXIS
     Route: 048

REACTIONS (4)
  - Faecaloma [Recovered/Resolved]
  - General physical health deterioration [Unknown]
  - Paraesthesia [Unknown]
  - Venous thrombosis limb [Not Recovered/Not Resolved]

NARRATIVE: CASE EVENT DATE: 20150909
